FAERS Safety Report 18507192 (Version 1)
Quarter: 2020Q4

REPORT INFORMATION
  Report Type: Spontaneous
  Country: US (occurrence: US)
  Receive Date: 20201112
  Receipt Date: 20201112
  Transmission Date: 20210114
  Serious: Yes (Hospitalization, Other)
  Sender: FDA-Public Use
  Company Number: None

PATIENT
  Sex: Female

DRUGS (7)
  1. ENBREL [Suspect]
     Active Substance: ETANERCEPT
     Indication: RHEUMATOID ARTHRITIS
     Route: 058
     Dates: start: 20190611, end: 20201111
  2. METHOTREXATE. [Concomitant]
     Active Substance: METHOTREXATE
  3. TEMAXEPAM [Concomitant]
  4. GABAPENTIN. [Concomitant]
     Active Substance: GABAPENTIN
  5. FOLIC ACID. [Concomitant]
     Active Substance: FOLIC ACID
  6. LISINOPRIL. [Concomitant]
     Active Substance: LISINOPRIL
  7. DULOXETINE. [Concomitant]
     Active Substance: DULOXETINE

REACTIONS (3)
  - Fall [None]
  - Localised infection [None]
  - Mental disorder [None]
